FAERS Safety Report 22105847 (Version 6)
Quarter: 2024Q4

REPORT INFORMATION
  Report Type: Report from Study
  Country: JP (occurrence: JP)
  Receive Date: 20230317
  Receipt Date: 20241105
  Transmission Date: 20250115
  Serious: Yes (Hospitalization, Other)
  Sender: TAKEDA
  Company Number: JP-TAKEDA-2023TJP003532

PATIENT
  Age: 79 Year
  Sex: Male
  Weight: 51.8 kg

DRUGS (40)
  1. VONICOG ALFA [Suspect]
     Active Substance: VONICOG ALFA
     Indication: Haemostasis
     Dosage: 3900 INTERNATIONAL UNIT
     Route: 042
     Dates: start: 20230308, end: 20230308
  2. VONICOG ALFA [Suspect]
     Active Substance: VONICOG ALFA
     Dosage: 5200 INTERNATIONAL UNIT
     Route: 042
     Dates: start: 20230309, end: 20230310
  3. VONICOG ALFA [Suspect]
     Active Substance: VONICOG ALFA
     Dosage: 7800 INTERNATIONAL UNIT
     Route: 042
     Dates: start: 20230311, end: 20230316
  4. VONICOG ALFA [Suspect]
     Active Substance: VONICOG ALFA
     Dosage: 10400 INTERNATIONAL UNIT
     Route: 042
     Dates: start: 20230317, end: 20230317
  5. VONICOG ALFA [Suspect]
     Active Substance: VONICOG ALFA
     Dosage: 11700 INTERNATIONAL UNIT
     Route: 042
     Dates: start: 20230318, end: 20230319
  6. VONICOG ALFA [Suspect]
     Active Substance: VONICOG ALFA
     Dosage: 13000 INTERNATIONAL UNIT
     Route: 042
     Dates: start: 20230320, end: 20230320
  7. VONICOG ALFA [Suspect]
     Active Substance: VONICOG ALFA
     Dosage: 7800 INTERNATIONAL UNIT
     Route: 042
     Dates: start: 20230321, end: 20230323
  8. VONICOG ALFA [Suspect]
     Active Substance: VONICOG ALFA
     Dosage: 5200 INTERNATIONAL UNIT
     Route: 042
     Dates: start: 20230324, end: 20230327
  9. VONICOG ALFA [Suspect]
     Active Substance: VONICOG ALFA
     Dosage: 2600 INTERNATIONAL UNIT
     Route: 042
     Dates: start: 20230328, end: 20230329
  10. VONOPRAZAN FUMARATE [Concomitant]
     Active Substance: VONOPRAZAN FUMARATE
     Dosage: 2 DOSAGE FORM, QD
     Route: 065
  11. REBAMIPIDE [Concomitant]
     Active Substance: REBAMIPIDE
     Dosage: 1 DOSAGE FORM, BID
     Route: 065
  12. OLMESARTAN [Concomitant]
     Active Substance: OLMESARTAN
     Dosage: 1 DOSAGE FORM, QD
     Route: 065
  13. AMLODIPINE BESYLATE [Concomitant]
     Active Substance: AMLODIPINE BESYLATE
     Dosage: 1 DOSAGE FORM, QD
     Route: 065
  14. SILODOSIN [Concomitant]
     Active Substance: SILODOSIN
     Dosage: 1 DOSAGE FORM, BID
     Route: 065
  15. DUTASTERIDE [Concomitant]
     Active Substance: DUTASTERIDE
     Dosage: 1 DOSAGE FORM, QD
     Route: 065
  16. THEO-DUR [Concomitant]
     Active Substance: THEOPHYLLINE ANHYDROUS
     Dosage: 2 DOSAGE FORM, BID
     Route: 065
  17. TRAZODONE HYDROCHLORIDE [Concomitant]
     Active Substance: TRAZODONE HYDROCHLORIDE
     Dosage: 1 DOSAGE FORM, QD
     Route: 065
  18. ZOLPIDEM TARTRATE [Concomitant]
     Active Substance: ZOLPIDEM TARTRATE
     Dosage: 1 DOSAGE FORM, QD
     Route: 065
  19. MOSAPRIDE CITRATE [Concomitant]
     Active Substance: MOSAPRIDE CITRATE
     Dosage: 1 DOSAGE FORM, TID
     Route: 065
  20. OLODATEROL HYDROCHLORIDE\TIOTROPIUM BROMIDE MONOHYDRATE [Concomitant]
     Active Substance: OLODATEROL HYDROCHLORIDE\TIOTROPIUM BROMIDE MONOHYDRATE
     Dosage: UNK
     Route: 065
  21. MAGNESIUM OXIDE [Concomitant]
     Active Substance: MAGNESIUM OXIDE
     Dosage: 1 DOSAGE FORM, TID
     Route: 065
  22. DAYVIGO [Concomitant]
     Active Substance: LEMBOREXANT
     Dosage: 2 DOSAGE FORM, QD
     Route: 065
  23. FEBUXOSTAT [Concomitant]
     Active Substance: FEBUXOSTAT
     Dosage: 1 DOSAGE FORM, QD
     Route: 065
  24. REVLIMID [Concomitant]
     Active Substance: LENALIDOMIDE
     Dosage: 2 DOSAGE FORM, QD
     Route: 065
  25. LENADEX [Concomitant]
     Active Substance: DEXAMETHASONE ACETATE
     Dosage: 2 DOSAGE FORM, QD
     Route: 065
  26. SODIUM PICOSULFATE [Concomitant]
     Active Substance: SODIUM PICOSULFATE
     Dosage: UNK
     Route: 065
  27. LINZESS [Concomitant]
     Active Substance: LINACLOTIDE
     Dosage: 2 DOSAGE FORM, QD
     Route: 065
  28. ACYCLOVIR [Concomitant]
     Active Substance: ACYCLOVIR
     Dosage: 1 DOSAGE FORM, QD
     Route: 065
  29. ADONA [Concomitant]
     Dosage: 2 DOSAGE FORM, BID
     Route: 065
  30. AMINO ACIDS\DEXTROSE\ELECTROLYTES NOS\MINERALS\VITAMINS [Concomitant]
     Active Substance: AMINO ACIDS\DEXTROSE\ELECTROLYTES NOS\MINERALS\VITAMINS
     Dosage: UNK
     Route: 065
  31. AMINO ACIDS, SOURCE UNSPECIFIED [Concomitant]
     Active Substance: AMINO ACIDS, SOURCE UNSPECIFIED
     Dosage: UNK
     Route: 065
  32. CALCIUM CHLORIDE ANHYDROUS\POTASSIUM CHLORIDE\SODIUM CHLORIDE\SODIUM L [Concomitant]
     Active Substance: CALCIUM CHLORIDE ANHYDROUS\POTASSIUM CHLORIDE\SODIUM CHLORIDE\SODIUM LACTATE
     Dosage: UNK
     Route: 065
  33. CALCIUM GLUCONATE\DEXTROSE\MAGNESIUM SULFATE\POTASSIUM ACETATE\POTASSI [Concomitant]
     Active Substance: CALCIUM GLUCONATE\DEXTROSE\MAGNESIUM SULFATE\POTASSIUM ACETATE\POTASSIUM PHOSPHATE, DIBASIC\ZINC SUL
     Dosage: UNK
     Route: 065
  34. VITAMINS [Concomitant]
     Active Substance: VITAMINS
     Dosage: UNK
     Route: 065
  35. CUPRIC SULFATE\FERRIC CHLORIDE\MANGANESE CHLORIDE\POTASSIUM IODIDE\ZIN [Concomitant]
     Active Substance: CUPRIC SULFATE\FERRIC CHLORIDE\MANGANESE CHLORIDE\POTASSIUM IODIDE\ZINC SULFATE
     Dosage: UNK
     Route: 065
  36. AMINO ACIDS\DEXTROSE\ELECTROLYTES NOS\VITAMINS [Concomitant]
     Active Substance: AMINO ACIDS\DEXTROSE\ELECTROLYTES NOS\VITAMINS
     Dosage: UNK
     Route: 065
  37. FIBRINOGEN HUMAN [Concomitant]
     Active Substance: FIBRINOGEN HUMAN
     Dosage: UNK
     Route: 065
  38. ACETAMINOPHEN [Concomitant]
     Active Substance: ACETAMINOPHEN
     Dosage: UNK
     Route: 065
  39. TEICOPLANIN [Concomitant]
     Active Substance: TEICOPLANIN
     Dosage: UNK
     Route: 065
  40. CEFEPIME HYDROCHLORIDE [Concomitant]
     Active Substance: CEFEPIME HYDROCHLORIDE
     Dosage: UNK
     Route: 065

REACTIONS (2)
  - Drug ineffective [Recovered/Resolved]
  - Urinary tract infection [Recovered/Resolved]

NARRATIVE: CASE EVENT DATE: 20230308
